FAERS Safety Report 11686153 (Version 1)
Quarter: 2015Q4

REPORT INFORMATION
  Report Type: Report from Study
  Country: US (occurrence: US)
  Receive Date: 20151030
  Receipt Date: 20151030
  Transmission Date: 20160304
  Serious: Yes (Hospitalization)
  Sender: FDA-Public Use
  Company Number: PHEH2015US021963

PATIENT
  Age: 56 Year
  Sex: Female
  Weight: 83.9 kg

DRUGS (1)
  1. GILENYA [Suspect]
     Active Substance: FINGOLIMOD HYDROCHLORIDE
     Indication: MULTIPLE SCLEROSIS
     Dosage: 0.5 MG, QD
     Route: 048
     Dates: start: 20110809

REACTIONS (4)
  - Abdominal pain [Unknown]
  - Renal disorder [Unknown]
  - Back pain [Unknown]
  - Sepsis [Unknown]

NARRATIVE: CASE EVENT DATE: 20150927
